FAERS Safety Report 17280078 (Version 3)
Quarter: 2021Q2

REPORT INFORMATION
  Report Type: Other
  Country: CA (occurrence: CA)
  Receive Date: 20200117
  Receipt Date: 20210521
  Transmission Date: 20210716
  Serious: Yes (Other)
  Sender: FDA-Public Use
  Company Number: CA-ROCHE-2181797

PATIENT
  Age: 48 Year
  Sex: Female

DRUGS (11)
  1. BOTOX [Concomitant]
     Active Substance: ONABOTULINUMTOXINA
  2. MACROBID [Concomitant]
     Active Substance: NITROFURANTOIN\NITROFURANTOIN MONOHYDRATE
     Indication: CYSTITIS
  3. FISH OIL [Concomitant]
     Active Substance: FISH OIL
  4. MYRBETRIQ [Concomitant]
     Active Substance: MIRABEGRON
     Dates: start: 20190823
  5. MODAFINIL. [Concomitant]
     Active Substance: MODAFINIL
  6. BACLOFEN. [Concomitant]
     Active Substance: BACLOFEN
  7. OCREVUS [Suspect]
     Active Substance: OCRELIZUMAB
     Indication: RELAPSING-REMITTING MULTIPLE SCLEROSIS
  8. GABAPENTIN. [Concomitant]
     Active Substance: GABAPENTIN
  9. OCREVUS [Suspect]
     Active Substance: OCRELIZUMAB
     Indication: RELAPSING-REMITTING MULTIPLE SCLEROSIS
     Dosage: 300 MG AT DAY 0 AND 14, THEN 600 MG EVERY 6 MONTH
     Route: 042
     Dates: start: 20180828
  10. TRINTELLIX [Concomitant]
     Active Substance: VORTIOXETINE HYDROBROMIDE
  11. MAGNESIUM [Concomitant]
     Active Substance: MAGNESIUM

REACTIONS (9)
  - Hypoaesthesia [Recovering/Resolving]
  - Bacterial disease carrier [Unknown]
  - Headache [Recovered/Resolved]
  - Asthenia [Not Recovered/Not Resolved]
  - Fatigue [Recovering/Resolving]
  - Hypokinesia [Not Recovered/Not Resolved]
  - Muscular weakness [Recovering/Resolving]
  - Balance disorder [Recovering/Resolving]
  - Cystitis [Recovered/Resolved]

NARRATIVE: CASE EVENT DATE: 20180831
